FAERS Safety Report 5242698-4 (Version None)
Quarter: 2007Q1

REPORT INFORMATION
  Report Type: 
  Country: None (occurrence: None)
  Receive Date: 20070221
  Receipt Date: 20070220
  Transmission Date: 20070707
  Serious: Yes (Other)
  Sender: FDA-Public Use
  Company Number: BPC-ZN-06-110

PATIENT
  Age: 58 Year
  Sex: Male
  Weight: 83.2 kg

DRUGS (2)
  1. ZYBAN [Suspect]
     Dosage: 150MG TWICE PER DAY
     Route: 048
     Dates: start: 20050802
  2. IMOVANE [Concomitant]

REACTIONS (6)
  - DERMATITIS ACNEIFORM [None]
  - DRUG EFFECT DECREASED [None]
  - DRY MOUTH [None]
  - IMMOBILE [None]
  - MUSCULOSKELETAL STIFFNESS [None]
  - MYALGIA [None]
